FAERS Safety Report 14003111 (Version 5)
Quarter: 2018Q1

REPORT INFORMATION
  Report Type: Spontaneous
  Country: US (occurrence: US)
  Receive Date: 20170922
  Receipt Date: 20180110
  Transmission Date: 20180508
  Serious: No
  Sender: FDA-Public Use
  Company Number: US-ASTRAZENECA-2017SE96467

PATIENT
  Age: 33174 Day
  Sex: Female
  Weight: 63 kg

DRUGS (1)
  1. TUDORZA PRESSAIR [Suspect]
     Active Substance: ACLIDINIUM BROMIDE
     Indication: CHRONIC OBSTRUCTIVE PULMONARY DISEASE
     Dosage: 400 MCG ONE INHALATION TWO TIMES A DAY
     Route: 055

REACTIONS (8)
  - Device issue [Unknown]
  - Asthenia [Unknown]
  - Dyspnoea [Unknown]
  - Drug dose omission [Unknown]
  - Depressed mood [Unknown]
  - Intentional device misuse [Unknown]
  - Fatigue [Unknown]
  - Product quality issue [Unknown]

NARRATIVE: CASE EVENT DATE: 20171121
